FAERS Safety Report 4504621-7 (Version None)
Quarter: 2004Q4

REPORT INFORMATION
  Report Type: 
  Country: None (occurrence: None)
  Receive Date: 20041116
  Receipt Date: 20041103
  Transmission Date: 20050328
  Serious: Yes (Hospitalization)
  Sender: FDA-Public Use
  Company Number: A02200403271

PATIENT
  Age: 37 Year
  Sex: Female

DRUGS (2)
  1. PLAQUENIL [Suspect]
     Indication: RHEUMATOID ARTHRITIS
     Route: 048
     Dates: start: 19890101, end: 19890101
  2. CORTANCYL-(PREDNISONE)-TABLET-20 MG [Suspect]
     Indication: RHEUMATOID ARTHRITIS
     Route: 048

REACTIONS (1)
  - PEPTIC ULCER PERFORATION [None]
